FAERS Safety Report 7810866-0 (Version None)
Quarter: 2011Q4

REPORT INFORMATION
  Report Type: 
  Country: None (occurrence: None)
  Receive Date: 20111012
  Receipt Date: 20111012
  Transmission Date: 20120403
  Serious: Yes (Hospitalization)
  Sender: FDA-Public Use
  Company Number: None

PATIENT
  Sex: Female
  Weight: 97.3 kg

DRUGS (3)
  1. NEULASTA [Suspect]
     Dosage: 6 G
  2. IFOSFAMIDE [Suspect]
     Dosage: 9000 MG
  3. TAXOL [Suspect]
     Dosage: 264 MG

REACTIONS (8)
  - FATIGUE [None]
  - DYSURIA [None]
  - ESCHERICHIA TEST POSITIVE [None]
  - VOMITING [None]
  - ASTHENIA [None]
  - HAEMATURIA [None]
  - DEHYDRATION [None]
  - MALAISE [None]
